FAERS Safety Report 4810314-9 (Version None)
Quarter: 2005Q4

REPORT INFORMATION
  Report Type: 
  Country: None (occurrence: None)
  Receive Date: 20051024
  Receipt Date: 20051011
  Transmission Date: 20060501
  Serious: Yes (Death, Hospitalization)
  Sender: FDA-Public Use
  Company Number: 2005141196

PATIENT
  Age: 91 Year
  Sex: Female

DRUGS (5)
  1. BEXTRA [Suspect]
     Indication: HYPOAESTHESIA
     Dosage: 40 MG (40 MG, 1 IN 1 D), ORAL
     Route: 048
     Dates: start: 20050204, end: 20050217
  2. IMDUR [Concomitant]
  3. CRESTOR [Concomitant]
  4. ZIAC [Concomitant]
  5. MEFENAMIC ACID [Concomitant]

REACTIONS (3)
  - ACUTE MYOCARDIAL INFARCTION [None]
  - CARDIO-RESPIRATORY ARREST [None]
  - HEADACHE [None]
